FAERS Safety Report 24930333 (Version 2)
Quarter: 2025Q1

REPORT INFORMATION
  Report Type: Spontaneous
  Country: US (occurrence: US)
  Receive Date: 20250205
  Receipt Date: 20250213
  Transmission Date: 20250409
  Serious: No
  Sender: PFIZER
  Company Number: US-PFIZER INC-202500024383

PATIENT
  Sex: Female

DRUGS (2)
  1. ESTRING [Suspect]
     Active Substance: ESTRADIOL
     Dosage: 7.5 UG, DAILY
     Route: 067
     Dates: start: 2019
  2. RECLAST [Concomitant]
     Active Substance: ZOLEDRONIC ACID
     Indication: Osteoporosis
     Dates: start: 2024

REACTIONS (3)
  - Musculoskeletal discomfort [Unknown]
  - Pelvic pain [Unknown]
  - Pelvic discomfort [Unknown]
